FAERS Safety Report 5504387-8 (Version None)
Quarter: 2007Q4

REPORT INFORMATION
  Report Type: 
  Country: None (occurrence: None)
  Receive Date: 20071101
  Receipt Date: 20071024
  Transmission Date: 20080405
  Serious: Yes (Hospitalization)
  Sender: FDA-Public Use
  Company Number: CO-ELI_LILLY_AND_COMPANY-CO200710006611

PATIENT
  Age: 27 Year
  Sex: Female

DRUGS (6)
  1. HUMALOG [Suspect]
     Indication: DIABETES MELLITUS
     Dosage: 1 IU, UNKNOWN
     Route: 058
  2. HUMALOG [Suspect]
     Dosage: 2 IU, UNKNOWN
     Route: 058
  3. HUMALOG [Suspect]
     Dosage: 3 IU, UNKNOWN
     Route: 058
  4. HUMALOG [Suspect]
     Dosage: 5 IU, UNKNOWN
     Route: 058
     Dates: start: 20071021
  5. LOSARTAN POTASSIUM [Concomitant]
     Dosage: 100 MG, 2/D
     Route: 065
  6. OMEPRAZOLE [Concomitant]
     Dosage: UNK, 2/D
     Route: 065

REACTIONS (2)
  - KETOACIDOSIS [None]
  - LIPODYSTROPHY ACQUIRED [None]
